FAERS Safety Report 14408269 (Version 2)
Quarter: 2018Q1

REPORT INFORMATION
  Report Type: Spontaneous
  Country: DE (occurrence: DE)
  Receive Date: 20180118
  Receipt Date: 20180215
  Transmission Date: 20180509
  Serious: Yes (Hospitalization)
  Sender: FDA-Public Use
  Company Number: DE-SA-2018SA008368

PATIENT
  Age: 47 Year
  Sex: Female
  Weight: 74 kg

DRUGS (11)
  1. MIRTAZAPINE. [Concomitant]
     Active Substance: MIRTAZAPINE
     Indication: DEPRESSION
     Route: 065
  2. PANTOZOL [Concomitant]
     Active Substance: PANTOPRAZOLE SODIUM
     Route: 065
  3. CHOLESTYRAMINE. [Concomitant]
     Active Substance: CHOLESTYRAMINE
     Dosage: POWDER FOR MANUFACTURING  AN ORAL SUSPENSION
     Route: 065
  4. PANTOPRAZOLE [Concomitant]
     Active Substance: PANTOPRAZOLE
     Route: 065
  5. PROPANOL/OCTENIDINE DIHYDROCHLORIDE [Concomitant]
     Route: 065
  6. AUBAGIO [Suspect]
     Active Substance: TERIFLUNOMIDE
     Indication: MULTIPLE SCLEROSIS
     Route: 048
     Dates: start: 201706, end: 20180107
  7. INNOHEP [Concomitant]
     Active Substance: TINZAPARIN SODIUM
     Route: 065
  8. GABAPENTIN. [Concomitant]
     Active Substance: GABAPENTIN
     Route: 065
     Dates: end: 20180110
  9. METAMIZOLE [Concomitant]
     Active Substance: METAMIZOLE
     Indication: NEURALGIA
     Route: 065
     Dates: start: 201712, end: 201712
  10. DEKRISTOL [Concomitant]
     Active Substance: CHOLECALCIFEROL
     Dosage: TWICE A WEEK
     Route: 065
  11. CARVEDILOL. [Concomitant]
     Active Substance: CARVEDILOL
     Route: 048

REACTIONS (27)
  - Ovarian cyst [Unknown]
  - Haemoglobin increased [Unknown]
  - Dyskinesia [Unknown]
  - Abdominal pain [Unknown]
  - Agranulocytosis [Recovered/Resolved]
  - Intracardiac thrombus [Unknown]
  - Ejection fraction decreased [Unknown]
  - Myocardial ischaemia [Unknown]
  - Hemiparesis [Unknown]
  - Headache [Unknown]
  - Stress cardiomyopathy [Unknown]
  - Flatulence [Unknown]
  - Leukopenia [Recovered/Resolved]
  - Cerebral infarction [Unknown]
  - Faecaloma [Unknown]
  - Spinal disorder [Unknown]
  - Haemangioma of liver [Unknown]
  - Breast cyst [Unknown]
  - Lymphocyte count decreased [Unknown]
  - Ventricular hypokinesia [Unknown]
  - Cerebrovascular accident [Unknown]
  - Renal infarct [Unknown]
  - Neutropenia [Recovered/Resolved]
  - Pyrexia [Recovered/Resolved]
  - Paraesthesia [Unknown]
  - Hypoaesthesia [Unknown]
  - Pain [Unknown]

NARRATIVE: CASE EVENT DATE: 2017
